FAERS Safety Report 4296680-4 (Version None)
Quarter: 2004Q1

REPORT INFORMATION
  Report Type: 
  Country: None (occurrence: None)
  Receive Date: 20040217
  Receipt Date: 20031114
  Transmission Date: 20041129
  Serious: Yes (Disabling, Other)
  Sender: FDA-Public Use
  Company Number: WAES 0311USA01793

PATIENT
  Age: 74 Year
  Sex: Female
  Weight: 92 kg

DRUGS (5)
  1. ASPIRIN [Concomitant]
  2. CALCIUM (UNSPECIFIED) [Concomitant]
  3. HYDRODIURIL [Concomitant]
     Route: 048
  4. METOPROLOL [Concomitant]
  5. ZOCOR [Suspect]
     Indication: HYPERLIPIDAEMIA
     Route: 048
     Dates: start: 19990101, end: 20020101

REACTIONS (4)
  - ARTHRALGIA [None]
  - CARDIAC DISORDER [None]
  - MUSCULOSKELETAL PAIN [None]
  - PAIN IN EXTREMITY [None]
